FAERS Safety Report 11558567 (Version 1)
Quarter: 2015Q3

REPORT INFORMATION
  Report Type: Spontaneous
  Country: US (occurrence: None)
  Receive Date: 20150925
  Receipt Date: 20150925
  Transmission Date: 20151125
  Serious: No
  Sender: FDA-Public Use
  Company Number: None

PATIENT
  Age: 44 Year
  Weight: 87.54 kg

DRUGS (2)
  1. FENOFIBRATE 145MG TAB [Suspect]
     Active Substance: FENOFIBRATE
     Route: 048
  2. FENOFIBRATE ACID [Concomitant]

REACTIONS (1)
  - Drug ineffective [None]
